FAERS Safety Report 24946112 (Version 1)
Quarter: 2025Q1

REPORT INFORMATION
  Report Type: Spontaneous
  Country: CN (occurrence: CN)
  Receive Date: 20250210
  Receipt Date: 20250210
  Transmission Date: 20250408
  Serious: Yes (Life-Threatening, Hospitalization, Other)
  Sender: ALKEM
  Company Number: None

PATIENT
  Age: 52 Year
  Sex: Female

DRUGS (9)
  1. LINEZOLID [Suspect]
     Active Substance: LINEZOLID
     Indication: Pulmonary tuberculosis
     Route: 065
     Dates: end: 20220920
  2. LINEZOLID [Suspect]
     Active Substance: LINEZOLID
     Dosage: 0.3 GRAM, QD, (DOSE REDUCED)
     Route: 065
  3. BEDAQUILINE [Concomitant]
     Active Substance: BEDAQUILINE
     Indication: Pulmonary tuberculosis
     Route: 065
  4. CLOFAZIMINE [Concomitant]
     Active Substance: CLOFAZIMINE
     Indication: Pulmonary tuberculosis
     Route: 065
  5. CYCLOSERINE [Concomitant]
     Active Substance: CYCLOSERINE
     Indication: Pulmonary tuberculosis
     Route: 065
  6. MEROPENEM [Concomitant]
     Active Substance: MEROPENEM
     Indication: Bacterial infection
     Dosage: 1.0 GRAM, TID, (Q8H)
     Route: 065
  7. PIPERACILLIN AND TAZOBACTAM [Concomitant]
     Active Substance: PIPERACILLIN SODIUM\TAZOBACTAM SODIUM
     Indication: Antibiotic therapy
     Dosage: 4.5 GRAM, TID, (EVERY 8 HOUR)
     Route: 065
  8. PROTIONAMIDE [Concomitant]
     Active Substance: PROTIONAMIDE
     Indication: Pulmonary tuberculosis
     Route: 065
  9. PYRAZINAMIDE [Concomitant]
     Active Substance: PYRAZINAMIDE
     Indication: Pulmonary tuberculosis
     Route: 065

REACTIONS (5)
  - Anaemia [Recovering/Resolving]
  - Myelosuppression [Recovering/Resolving]
  - Leukopenia [Unknown]
  - Neuropathy peripheral [Unknown]
  - Fatigue [Unknown]

NARRATIVE: CASE EVENT DATE: 20220101
